FAERS Safety Report 6225495-2 (Version None)
Quarter: 2009Q2

REPORT INFORMATION
  Report Type: 
  Country: None (occurrence: None)
  Receive Date: 20090612
  Receipt Date: 20090419
  Transmission Date: 20091009
  Serious: No
  Sender: FDA-Public Use
  Company Number: US-ABBOTT-09P-163-0569310-00

PATIENT
  Sex: Female
  Weight: 57.204 kg

DRUGS (2)
  1. HUMIRA [Suspect]
     Indication: CROHN'S DISEASE
     Dosage: DAY 1
  2. ENTOCORT EC [Concomitant]
     Indication: DRUG USE FOR UNKNOWN INDICATION
     Route: 048

REACTIONS (8)
  - BACK PAIN [None]
  - BLOOD IRON DECREASED [None]
  - EAR PAIN [None]
  - HAEMATOCHEZIA [None]
  - HEADACHE [None]
  - OROPHARYNGEAL PAIN [None]
  - PAIN [None]
  - VOMITING [None]
